FAERS Safety Report 5566331-7 (Version None)
Quarter: 2007Q4

REPORT INFORMATION
  Report Type: 
  Country: None (occurrence: None)
  Receive Date: 20071219
  Receipt Date: 20071211
  Transmission Date: 20080405
  Serious: Yes (Hospitalization)
  Sender: FDA-Public Use
  Company Number: PHHO2007ES19430

PATIENT
  Age: 33 Year
  Sex: Female
  Weight: 27 kg

DRUGS (5)
  1. SANDIMMUNE [Suspect]
     Indication: RENAL TRANSPLANT
     Dosage: 15 MG, BID
     Route: 048
  2. SANDIMMUNE [Suspect]
     Dosage: 75 MG, BID
     Route: 048
  3. MYFORTIC [Suspect]
     Indication: RENAL TRANSPLANT
     Dosage: 360 MG, BID
     Route: 048
  4. DIOVAN [Suspect]
     Indication: RENAL TRANSPLANT
     Dosage: NO TREATMENT
  5. CONTRAST MEDIA [Suspect]

REACTIONS (5)
  - EXERESIS [None]
  - INTRACRANIAL HAEMANGIOMA [None]
  - LASER THERAPY [None]
  - MENINGIOMA [None]
  - RENAL FAILURE ACUTE [None]
